FAERS Safety Report 25131437 (Version 1)
Quarter: 2025Q1

REPORT INFORMATION
  Report Type: Spontaneous
  Country: US (occurrence: US)
  Receive Date: 20250327
  Receipt Date: 20250327
  Transmission Date: 20250409
  Serious: No
  Sender: NOVARTIS
  Company Number: US-002147023-NVSC2025US046893

PATIENT
  Sex: Female
  Weight: 47.63 kg

DRUGS (2)
  1. KISQALI [Suspect]
     Active Substance: RIBOCICLIB
     Indication: Breast cancer
     Dosage: 400 MG, BID
     Route: 048
     Dates: start: 20241228, end: 20250317
  2. KISQALI [Suspect]
     Active Substance: RIBOCICLIB
     Route: 065

REACTIONS (1)
  - Pyrexia [Recovered/Resolved]
